FAERS Safety Report 10936297 (Version 1)
Quarter: 2015Q1

REPORT INFORMATION
  Report Type: Spontaneous
  Country: US (occurrence: None)
  Receive Date: 20150320
  Receipt Date: 20150320
  Transmission Date: 20150721
  Serious: Yes (Disabling, Other)
  Sender: FDA-Public Use
  Company Number: None

PATIENT
  Age: 60 Year
  Sex: Female
  Weight: 72.58 kg

DRUGS (13)
  1. PILOCARPONE HCL (GENERIC SALAGEN) [Concomitant]
  2. ACUFLORA [Concomitant]
  3. LOSARTAN POTASSIUM (GENERIC COZAAR) [Concomitant]
  4. IBUPROPHEN [Concomitant]
     Active Substance: IBUPROFEN
  5. SALMON OIL [Concomitant]
     Active Substance: FISH OIL
  6. METHADONE [Concomitant]
     Active Substance: METHADONE HYDROCHLORIDE
  7. ZOLPIDEM (GENERIC AMBIEN) [Concomitant]
  8. SALAGEN [Suspect]
     Active Substance: PILOCARPINE HYDROCHLORIDE
     Indication: DRY MOUTH
     Dosage: 2 PILLS THREE TIMES DAILY
     Route: 048
  9. CYCLOBENZAPRINE (GENERIC FLEXERIL) [Concomitant]
  10. METAMUCIL [Concomitant]
     Active Substance: PLANTAGO SEED
  11. VITAMIN D3 [Concomitant]
     Active Substance: CHOLECALCIFEROL
  12. GABAPENTIN. [Concomitant]
     Active Substance: GABAPENTIN
  13. PANTOPRAZOLE SOD DR (GENERIC PROTONIX) [Concomitant]

REACTIONS (7)
  - Renal pain [None]
  - Hyperhidrosis [None]
  - Chills [None]
  - Nausea [None]
  - Fatigue [None]
  - Dry skin [None]
  - Pruritus [None]

NARRATIVE: CASE EVENT DATE: 20150308
